FAERS Safety Report 10389209 (Version 1)
Quarter: 2014Q3

REPORT INFORMATION
  Report Type: Spontaneous
  Country: US (occurrence: US)
  Receive Date: 20140818
  Receipt Date: 20140818
  Transmission Date: 20150326
  Serious: Yes (Other)
  Sender: FDA-Public Use
  Company Number: US-ROCHE-1450229

PATIENT
  Sex: Male

DRUGS (1)
  1. INVIRASE [Suspect]
     Active Substance: SAQUINAVIR MESYLATE
     Indication: HIV INFECTION
     Route: 065

REACTIONS (2)
  - Throat cancer [Unknown]
  - Lip and/or oral cavity cancer [Unknown]
